FAERS Safety Report 4764628-1 (Version None)
Quarter: 2005Q3

REPORT INFORMATION
  Report Type: 
  Country: None (occurrence: None)
  Receive Date: 20050909
  Receipt Date: 20050711
  Transmission Date: 20060218
  Serious: Yes (Other)
  Sender: FDA-Public Use
  Company Number: BR-GLAXOSMITHKLINE-A0566335A

PATIENT
  Age: 84 Year
  Sex: Male
  Weight: 80 kg

DRUGS (6)
  1. ZENTEL [Suspect]
     Indication: INFECTION PARASITIC
     Dosage: 400MG PER DAY
     Route: 048
     Dates: start: 20050616, end: 20050620
  2. MAREVAN [Concomitant]
     Dosage: 5MG PER DAY
     Dates: start: 20040712
  3. METRONIDAZOLE [Concomitant]
     Dosage: 400MG TWICE PER DAY
     Dates: start: 20050614
  4. CALCIUM CARBONATE [Concomitant]
     Dosage: 200MG THREE TIMES PER DAY
     Dates: start: 20050614
  5. ENALAPRIL [Concomitant]
     Dosage: 10MG PER DAY
  6. RISPERDAL [Concomitant]
     Dosage: 1MG TWICE PER DAY

REACTIONS (4)
  - AGGRESSION [None]
  - INSOMNIA [None]
  - OEDEMA [None]
  - URINARY RETENTION [None]
